FAERS Safety Report 8637110 (Version 4)
Quarter: 2014Q1

REPORT INFORMATION
  Report Type: Spontaneous
  Country: US (occurrence: US)
  Receive Date: 20120627
  Receipt Date: 20140218
  Transmission Date: 20141002
  Serious: Yes (Hospitalization)
  Sender: FDA-Public Use
  Company Number: US-ASTRAZENECA-2012SE35428

PATIENT
  Age: 21128 Day
  Sex: Female

DRUGS (22)
  1. NEXIUM [Suspect]
     Dosage: ONCE A DAY
     Route: 048
     Dates: start: 20070926, end: 20101029
  2. NEXIUM [Suspect]
     Route: 048
     Dates: start: 20080707
  3. PRISTIQ [Concomitant]
  4. PRISTIQ [Concomitant]
     Dates: start: 20101230
  5. TRILEPTAL [Concomitant]
  6. STOOL SOFTENER [Concomitant]
     Dosage: TWO TIMES A DAY
  7. CLONOPIN [Concomitant]
  8. GENDON [Concomitant]
     Dates: start: 20100106
  9. CALCIUM [Concomitant]
  10. VITAMIN D [Concomitant]
  11. CYMBALTA [Concomitant]
  12. LYRICA [Concomitant]
  13. AVELOX [Concomitant]
  14. ENDOCET [Concomitant]
     Dosage: 10/ 650 MG
     Dates: start: 20100224
  15. CARISOPRODOL [Concomitant]
  16. MIRTAZAPINE [Concomitant]
     Dates: start: 20100524
  17. METHOTREXATE [Concomitant]
     Dates: start: 20100723
  18. LAMOTRIGINE [Concomitant]
     Dates: start: 20101013
  19. OXYCONTIN [Concomitant]
     Dates: start: 20101210
  20. HYDROXYZINE PAM [Concomitant]
     Dates: start: 20080801
  21. LOVAZA [Concomitant]
     Dates: start: 20081021
  22. MULTI-DAY [Concomitant]
     Dates: start: 20081117

REACTIONS (7)
  - Blood sodium decreased [Unknown]
  - Depression [Unknown]
  - Osteoporosis [Unknown]
  - Multiple fractures [Unknown]
  - Muscle rupture [Unknown]
  - Road traffic accident [Unknown]
  - Anxiety [Unknown]
